FAERS Safety Report 5566942-9 (Version None)
Quarter: 2007Q4

REPORT INFORMATION
  Report Type: 
  Country: None (occurrence: None)
  Receive Date: 20071219
  Receipt Date: 20070427
  Transmission Date: 20080405
  Serious: No
  Sender: FDA-Public Use
  Company Number: US-BRISTOL-MYERS SQUIBB COMPANY-13763966

PATIENT
  Age: 82 Year
  Sex: Female
  Weight: 73 kg

DRUGS (4)
  1. PRAVACHOL [Suspect]
     Indication: BLOOD CHOLESTEROL INCREASED
     Dosage: STARTED MORE THAN 1 YEAR AGO.
     Route: 048
  2. PLAVIX [Suspect]
     Indication: INTERMITTENT CLAUDICATION
     Dosage: STARTED ABOUT 1 YEAR AGO.
  3. ATENOLOL [Concomitant]
  4. CELEBREX [Concomitant]
     Dosage: 1 TABLET EVERY OTHER DAY.
     Dates: start: 20061201, end: 20070422

REACTIONS (1)
  - ABNORMAL DREAMS [None]
